FAERS Safety Report 4866654-0 (Version None)
Quarter: 2005Q4

REPORT INFORMATION
  Report Type: 
  Country: None (occurrence: None)
  Receive Date: 20051222
  Receipt Date: 20051213
  Transmission Date: 20060501
  Serious: Yes (Disabling)
  Sender: FDA-Public Use
  Company Number: 2005167985

PATIENT
  Age: 60 Year
  Sex: Female
  Weight: 57.1532 kg

DRUGS (4)
  1. CABERGOLINE [Suspect]
     Indication: PARKINSON'S DISEASE
     Dosage: 6 MG (4 MG, ONCE DAILY), ORAL
     Route: 048
  2. SINEMET [Concomitant]
  3. SINEMET CR [Concomitant]
  4. IMIPRAMINE [Concomitant]

REACTIONS (3)
  - CONDITION AGGRAVATED [None]
  - MOVEMENT DISORDER [None]
  - PARKINSON'S DISEASE [None]
